FAERS Safety Report 5524473-6 (Version None)
Quarter: 2007Q4

REPORT INFORMATION
  Report Type: 
  Country: None (occurrence: None)
  Receive Date: 20071122
  Receipt Date: 20071112
  Transmission Date: 20080405
  Serious: Yes (Other)
  Sender: FDA-Public Use
  Company Number: PHBS2007BR19092

PATIENT
  Sex: Male

DRUGS (4)
  1. SANDIMMUNE [Suspect]
     Indication: PYODERMA GANGRENOSUM
     Dosage: 2 TAB AT ONCE/ONE DAY AND 1 TAB/OTHER DAY
     Route: 048
     Dates: start: 20070101, end: 20070701
  2. SANDIMMUNE [Suspect]
     Route: 048
     Dates: start: 20071001, end: 20071111
  3. CLOXACILLIN SODIUM [Concomitant]
     Indication: PYODERMA GANGRENOSUM
     Dosage: 2 TAB/DAY
     Route: 048
  4. CORTICOSTEROID NOS [Concomitant]

REACTIONS (4)
  - DRUG INEFFECTIVE [None]
  - KELOID SCAR [None]
  - PYODERMA GANGRENOSUM [None]
  - SKIN LESION [None]
